FAERS Safety Report 8336929-1 (Version None)
Quarter: 2012Q2

REPORT INFORMATION
  Report Type: 
  Country: None (occurrence: None)
  Receive Date: 20120504
  Receipt Date: 20120502
  Transmission Date: 20120825
  Serious: Yes (Hospitalization, Disabling)
  Sender: FDA-Public Use
  Company Number: US-FRI-1000024712

PATIENT
  Age: 52 Year
  Sex: Female
  Weight: 100 kg

DRUGS (2)
  1. SAVELLA [Suspect]
     Indication: PAIN MANAGEMENT
  2. SAVELLA [Suspect]
     Indication: FIBROMYALGIA
     Dosage: DOSE PACK (TITRATION PACK)
     Dates: start: 20100801, end: 20100101

REACTIONS (2)
  - SUICIDAL IDEATION [None]
  - BIPOLAR DISORDER [None]
